FAERS Safety Report 17358558 (Version 3)
Quarter: 2020Q2

REPORT INFORMATION
  Report Type: Spontaneous
  Country: US (occurrence: US)
  Receive Date: 20200201
  Receipt Date: 20200406
  Transmission Date: 20200713
  Serious: Yes (Death, Life-Threatening, Hospitalization, Other)
  Sender: FDA-Public Use
  Company Number: US-ACCORD-171219

PATIENT
  Age: 56 Year
  Sex: Female

DRUGS (1)
  1. ESCITALOPRAM [Suspect]
     Active Substance: ESCITALOPRAM OXALATE
     Indication: DEPRESSION

REACTIONS (5)
  - Intraventricular haemorrhage [Fatal]
  - Subarachnoid haemorrhage [Fatal]
  - Haemorrhage intracranial [Fatal]
  - Vasospasm [Fatal]
  - Coma [Not Recovered/Not Resolved]
